FAERS Safety Report 7025094-9 (Version None)
Quarter: 2010Q4

REPORT INFORMATION
  Report Type: 
  Country: None (occurrence: None)
  Receive Date: 20101001
  Receipt Date: 20100922
  Transmission Date: 20110411
  Serious: Yes (Other)
  Sender: FDA-Public Use
  Company Number: AU-PURDUE-USA-2010-0047362

PATIENT
  Sex: Female

DRUGS (9)
  1. OXYCONTIN [Suspect]
     Indication: PRODUCT USED FOR UNKNOWN INDICATION
     Dosage: 360 MG, DAILY
     Route: 048
     Dates: start: 20100630
  2. PIPERACILLINA/TAZOBACTAM [Suspect]
     Indication: PRODUCT USED FOR UNKNOWN INDICATION
     Dosage: UNK
     Route: 042
     Dates: start: 20100630, end: 20100702
  3. CHOLECALCIFEROL [Concomitant]
  4. FLUOXETINE [Concomitant]
  5. FRUSEMIDE                          /00032601/ [Concomitant]
  6. FERROUS SULFATE [Concomitant]
  7. PANTOPRAZOLE [Concomitant]
  8. QUETIAPINE [Concomitant]
  9. RAMIPRIL [Concomitant]

REACTIONS (1)
  - STEVENS-JOHNSON SYNDROME [None]
